FAERS Safety Report 24149807 (Version 1)
Quarter: 2024Q3

REPORT INFORMATION
  Report Type: Spontaneous
  Country: PH (occurrence: PH)
  Receive Date: 20240730
  Receipt Date: 20240730
  Transmission Date: 20241017
  Serious: No
  Sender: ALKEM
  Company Number: PH-ALKEM LABORATORIES LIMITED-PH-ALKEM-2023-10449

PATIENT
  Age: 21 Year
  Sex: Female

DRUGS (3)
  1. CEFUROXIME SODIUM [Suspect]
     Active Substance: CEFUROXIME SODIUM
     Indication: Cough
     Dosage: 500 MILLIGRAM, BID
     Route: 048
     Dates: start: 20221221, end: 20221222
  2. ACETAMINOPHEN\CHLORPHENIRAMINE MALEATE\PHENYLEPHRINE HYDROCHLORIDE [Suspect]
     Active Substance: ACETAMINOPHEN\CHLORPHENIRAMINE MALEATE\PHENYLEPHRINE HYDROCHLORIDE
     Indication: Influenza
     Dosage: UNK, QID
     Route: 048
     Dates: start: 20221221
  3. ASCORBIC ACID [Suspect]
     Active Substance: ASCORBIC ACID
     Indication: Supplementation therapy
     Dosage: 500 MILLIGRAM, QD
     Route: 048
     Dates: start: 20221221

REACTIONS (1)
  - Rash [Unknown]
